FAERS Safety Report 12115976 (Version 1)
Quarter: 2016Q1

REPORT INFORMATION
  Report Type: Not Available
  Country: None (occurrence: US)
  Receive Date: 20160225
  Receipt Date: 20160225
  Transmission Date: 20160526
  Serious: Yes (Hospitalization, Other)
  Sender: FDA-Public Use
  Company Number: US-AKORN-25463

PATIENT
  Age: 52 Year
  Sex: Male

DRUGS (1)
  1. ACYCLOVIR ORAL SUSPENSION, 200 MG/5 ML (ALPHARMA) (ACICLOVIR) [Suspect]
     Active Substance: ACYCLOVIR

REACTIONS (3)
  - Hallucination [Recovered/Resolved]
  - Altered state of consciousness [Recovered/Resolved]
  - Status epilepticus [Recovered/Resolved]
